FAERS Safety Report 19689671 (Version 1)
Quarter: 2021Q3

REPORT INFORMATION
  Report Type: Report from Study
  Country: US (occurrence: US)
  Receive Date: 20210812
  Receipt Date: 20210812
  Transmission Date: 20211014
  Serious: Yes (Other)
  Sender: FDA-Public Use
  Company Number: US-SUN PHARMACEUTICAL INDUSTRIES LTD-2021R1-307640

PATIENT

DRUGS (1)
  1. BUDESONIDE. [Suspect]
     Active Substance: BUDESONIDE
     Indication: TRANSPLANT REJECTION
     Dosage: UNK
     Route: 048

REACTIONS (4)
  - Post transplant lymphoproliferative disorder [Unknown]
  - Epstein-Barr viraemia [Unknown]
  - Laboratory test abnormal [Recovered/Resolved]
  - Drug ineffective [Unknown]
